FAERS Safety Report 9780336 (Version 2)
Quarter: 2014Q1

REPORT INFORMATION
  Report Type: Report from Study
  Country: GB (occurrence: GB)
  Receive Date: 20131224
  Receipt Date: 20140315
  Transmission Date: 20141002
  Serious: Yes (Other)
  Sender: FDA-Public Use
  Company Number: GB-ROCHE-1324476

PATIENT
  Age: 84 Year
  Sex: Female

DRUGS (9)
  1. RANIBIZUMAB [Suspect]
     Indication: AGE-RELATED MACULAR DEGENERATION
     Route: 065
     Dates: start: 20120718
  2. RANIBIZUMAB [Suspect]
     Route: 065
     Dates: start: 20130118
  3. RANIBIZUMAB [Suspect]
     Route: 065
     Dates: start: 20140103
  4. AMLODIPINE [Concomitant]
     Route: 065
     Dates: start: 2010
  5. SIMVASTATIN [Concomitant]
     Route: 065
     Dates: start: 2009
  6. FLUTICASONE [Concomitant]
     Route: 065
     Dates: start: 2002
  7. VENTOLINE [Concomitant]
     Route: 065
     Dates: start: 2010
  8. CO-CODAMOL [Concomitant]
     Route: 065
     Dates: start: 2000
  9. TRANDOLAPRIL [Concomitant]
     Route: 065
     Dates: start: 2010

REACTIONS (2)
  - Cerebrovascular accident [Unknown]
  - Transient ischaemic attack [Recovered/Resolved]
